FAERS Safety Report 9285014 (Version 1)
Quarter: 2013Q2

REPORT INFORMATION
  Report Type: Spontaneous
  Country: DE (occurrence: DE)
  Receive Date: 20130513
  Receipt Date: 20130513
  Transmission Date: 20140414
  Serious: Yes (Death)
  Sender: FDA-Public Use
  Company Number: PHHY2013DE025864

PATIENT
  Age: 47 Year
  Sex: Female
  Weight: 34 kg

DRUGS (3)
  1. ZOMETA [Suspect]
     Indication: BREAST CANCER METASTATIC
     Dosage: MONTHLY
     Route: 042
     Dates: end: 201303
  2. PALLADON [Concomitant]
     Indication: PAIN
     Dosage: 20 MG, DAILY
     Route: 048
  3. METOCLOPRAMIDE [Concomitant]
     Indication: EPIGASTRIC DISCOMFORT
     Dosage: 60 MG, DAILY
     Route: 048

REACTIONS (1)
  - Cardiac failure [Fatal]
